FAERS Safety Report 10511393 (Version 4)
Quarter: 2015Q1

REPORT INFORMATION
  Report Type: Spontaneous
  Country: DE (occurrence: DE)
  Receive Date: 20141010
  Receipt Date: 20150122
  Transmission Date: 20150720
  Serious: Yes (Other)
  Sender: FDA-Public Use
  Company Number: DE-ELI_LILLY_AND_COMPANY-DE201409010602

PATIENT
  Age: 80 Year
  Sex: Female

DRUGS (6)
  1. CANDESARTAN CILEXETIL AND HYDROCHLOROTHIAZIDE [Concomitant]
     Active Substance: CANDESARTAN CILEXETIL\HYDROCHLOROTHIAZIDE
     Dosage: UNK, UNKNOWN
     Route: 065
  2. VIGANTOLETTEN [Concomitant]
     Active Substance: CHOLECALCIFEROL
     Dosage: UNK, UNKNOWN
     Route: 065
  3. FORSTEO [Suspect]
     Active Substance: TERIPARATIDE
     Indication: FRACTURED SACRUM
     Dosage: 20 UG, QD
     Route: 058
     Dates: start: 20140912, end: 20140924
  4. CALCIUM EFFERVESCENT TABLET [Concomitant]
     Dosage: UNK, UNKNOWN
     Route: 065
  5. PANTOPRAZOLE [Concomitant]
     Active Substance: PANTOPRAZOLE SODIUM
     Dosage: 40 MG, QD
     Route: 065
     Dates: start: 20140922
  6. NOVAMINSULFON [Concomitant]
     Active Substance: METAMIZOLE
     Dosage: UNK, UNKNOWN

REACTIONS (6)
  - Gamma-glutamyltransferase increased [Recovering/Resolving]
  - Aspartate aminotransferase increased [Recovering/Resolving]
  - Blood alkaline phosphatase increased [Recovering/Resolving]
  - Off label use [Unknown]
  - Alanine aminotransferase increased [Recovering/Resolving]
  - Nausea [Recovering/Resolving]
